FAERS Safety Report 19597626 (Version 1)
Quarter: 2021Q3

REPORT INFORMATION
  Report Type: Spontaneous
  Country: US (occurrence: US)
  Receive Date: 20210723
  Receipt Date: 20210723
  Transmission Date: 20211014
  Serious: No
  Sender: FDA-Public Use
  Company Number: US-ORGANON-O2107USA001558

PATIENT
  Age: 16 Year
  Sex: Female

DRUGS (1)
  1. ELOCON [Suspect]
     Active Substance: MOMETASONE FUROATE
     Indication: MORPHOEA
     Dosage: UNK
     Route: 061

REACTIONS (1)
  - Product use in unapproved indication [Unknown]
